FAERS Safety Report 13236270 (Version 1)
Quarter: 2017Q1

REPORT INFORMATION
  Report Type: Report from Study
  Country: None (occurrence: US)
  Receive Date: 20170215
  Receipt Date: 20170215
  Transmission Date: 20170428
  Serious: No
  Sender: FDA-Public Use
  Company Number: US-AMAG PHARMACEUTICALS, INC.-AMAG201700414

PATIENT

DRUGS (1)
  1. MAKENA [Suspect]
     Active Substance: HYDROXYPROGESTERONE CAPROATE
     Indication: PREMATURE DELIVERY
     Dosage: UNK
     Route: 065
     Dates: start: 20170111

REACTIONS (4)
  - Vaginal discharge [Unknown]
  - Injection site pain [Recovered/Resolved]
  - Vaginal odour [Unknown]
  - Dizziness [Unknown]

NARRATIVE: CASE EVENT DATE: 20170111
